FAERS Safety Report 6202765-5 (Version None)
Quarter: 2009Q2

REPORT INFORMATION
  Report Type: 
  Country: None (occurrence: None)
  Receive Date: 20090520
  Receipt Date: 20090511
  Transmission Date: 20091009
  Serious: Yes (Disabling)
  Sender: FDA-Public Use
  Company Number: GXKR2009GB05678

PATIENT
  Age: 68 Year
  Sex: Female

DRUGS (4)
  1. DICLOFENAC (NGX) (DICLOFENAC) [Suspect]
  2. FERROUS SULFATE TAB [Suspect]
     Dosage: 600 MG/DAY,
     Dates: start: 20090312
  3. FRUMIL (AMILORIDE HYDROCHLORIDE, FUROSEMIDE) [Suspect]
  4. ANTITHROMBOTIC AGENTS (NO INGREDIENTS/SUBSTANCES) [Suspect]
     Indication: KNEE ARTHROPLASTY
     Dates: start: 20090301, end: 20090312

REACTIONS (7)
  - BLOOD SODIUM DECREASED [None]
  - DIZZINESS [None]
  - DYSPEPSIA [None]
  - GASTROINTESTINAL HAEMORRHAGE [None]
  - HAEMOGLOBIN DECREASED [None]
  - MALAISE [None]
  - MELAENA [None]
